FAERS Safety Report 14869069 (Version 2)
Quarter: 2018Q2

REPORT INFORMATION
  Report Type: Spontaneous
  Country: US (occurrence: US)
  Receive Date: 20180509
  Receipt Date: 20180529
  Transmission Date: 20180711
  Serious: No
  Sender: FDA-Public Use
  Company Number: US-009507513-1804USA005104

PATIENT
  Sex: Female

DRUGS (1)
  1. ZEPATIER [Suspect]
     Active Substance: ELBASVIR\GRAZOPREVIR
     Indication: HEPATITIS C
     Dosage: 50-100 MG QD
     Route: 048
     Dates: start: 20180315

REACTIONS (6)
  - Exposure during pregnancy [Unknown]
  - Headache [Unknown]
  - Urinary tract infection [Unknown]
  - Trichorrhexis [Unknown]
  - Product use issue [Unknown]
  - Hair texture abnormal [Unknown]

NARRATIVE: CASE EVENT DATE: 2018
